FAERS Safety Report 6257677-8 (Version None)
Quarter: 2009Q3

REPORT INFORMATION
  Report Type: 
  Country: None (occurrence: None)
  Receive Date: 20090702
  Receipt Date: 20090622
  Transmission Date: 20100115
  Serious: Yes (Hospitalization)
  Sender: FDA-Public Use
  Company Number: 2009AL004051

PATIENT
  Age: 46 Year
  Sex: Female

DRUGS (6)
  1. METFORMIN HCL [Suspect]
     Dosage: 850 MG; TID
  2. RAMIPRIL [Suspect]
     Dosage: 2.5MG; QD
  3. CITALOPRAM HYDROBROMIDE [Suspect]
     Dosage: 20 MG; QD
  4. NOVOMIX [Concomitant]
  5. QUETIAPINE FUMARATE [Concomitant]
  6. PROCYCLIDINE HYDROCHLORIDE 2MG TAB [Concomitant]

REACTIONS (17)
  - ABDOMINAL PAIN [None]
  - AGITATION [None]
  - BLOOD GLUCOSE INCREASED [None]
  - BLOOD PRESSURE DECREASED [None]
  - C-REACTIVE PROTEIN INCREASED [None]
  - COMPUTERISED TOMOGRAM ABNORMAL [None]
  - CONTINUOUS HAEMODIAFILTRATION [None]
  - DEHYDRATION [None]
  - DRUG LEVEL INCREASED [None]
  - HYPOPHAGIA [None]
  - HYPOTHERMIA [None]
  - LACTIC ACIDOSIS [None]
  - OVERDOSE [None]
  - PLATELET COUNT INCREASED [None]
  - RENAL FAILURE ACUTE [None]
  - TONGUE ULCERATION [None]
  - WHITE BLOOD CELL COUNT INCREASED [None]
